FAERS Safety Report 22839501 (Version 6)
Quarter: 2023Q4

REPORT INFORMATION
  Report Type: Spontaneous
  Country: US (occurrence: US)
  Receive Date: 20230818
  Receipt Date: 20231130
  Transmission Date: 20240110
  Serious: Yes (Hospitalization)
  Sender: FDA-Public Use
  Company Number: US-BRISTOL-MYERS SQUIBB COMPANY-2023-115266

PATIENT
  Age: 62 Year
  Sex: Female

DRUGS (1)
  1. LENALIDOMIDE [Suspect]
     Active Substance: LENALIDOMIDE
     Indication: Plasma cell myeloma
     Dosage: TAKE 1 CAPSULE BY MOUTH ONCE DAILY ON DAYS 1-14 OF 21 DAY CYCLE, TAKE 1 CAPSULE BY MOUTH EVERY DAY F
     Route: 048
     Dates: start: 20230731

REACTIONS (12)
  - Respiratory tract congestion [Not Recovered/Not Resolved]
  - Dyspnoea exertional [Not Recovered/Not Resolved]
  - Dysphonia [Not Recovered/Not Resolved]
  - Productive cough [Not Recovered/Not Resolved]
  - Sputum discoloured [Not Recovered/Not Resolved]
  - Bronchitis [Not Recovered/Not Resolved]
  - Candida infection [Recovering/Resolving]
  - Nasopharyngitis [Recovering/Resolving]
  - Oedema peripheral [Recovering/Resolving]
  - Off label use [Unknown]
  - Muscular weakness [Unknown]
  - Blood potassium decreased [Recovering/Resolving]

NARRATIVE: CASE EVENT DATE: 20230801
